FAERS Safety Report 13028257 (Version 1)
Quarter: 2016Q4

REPORT INFORMATION
  Report Type: Spontaneous
  Country: US (occurrence: US)
  Receive Date: 20161214
  Receipt Date: 20161214
  Transmission Date: 20170207
  Serious: Yes (Other)
  Sender: FDA-Public Use
  Company Number: US-BAYER-2016-229752

PATIENT
  Age: 83 Year
  Sex: Male
  Weight: 64.4 kg

DRUGS (7)
  1. MAGNESIUM [MAGNESIUM] [Concomitant]
  2. CAMPHO-PHENIQUE ANTISEPTIC LIQUID [Suspect]
     Active Substance: CAMPHORATED PHENOL
     Indication: NASAL DRYNESS
     Dosage: 1 DF, UNK
     Route: 061
     Dates: start: 1940
  3. CAMPHO-PHENIQUE ANTISEPTIC LIQUID [Suspect]
     Active Substance: CAMPHORATED PHENOL
     Indication: DYSPNOEA
  4. MENTHOLATUM [Concomitant]
     Active Substance: CAMPHOR (SYNTHETIC)\MENTHOL
  5. CALYPTOL [ESSENTIAL OILS NOS] [Concomitant]
  6. BAYER ASPIRIN [Suspect]
     Active Substance: ASPIRIN
     Dosage: 2 DF, UNK
     Route: 048
  7. D3 VIGANTOL FORTE [Concomitant]

REACTIONS (3)
  - Wrong technique in product usage process [None]
  - Product use issue [None]
  - Internal haemorrhage [None]
